FAERS Safety Report 7476411-7 (Version None)
Quarter: 2011Q2

REPORT INFORMATION
  Report Type: 
  Country: None (occurrence: None)
  Receive Date: 20110512
  Receipt Date: 20110422
  Transmission Date: 20111010
  Serious: No
  Sender: FDA-Public Use
  Company Number: US-B.I. PHARMACEUTICALS,INC./RIDGEFIELD-2011-BP-06603BP

PATIENT
  Age: 71 Year
  Sex: Male

DRUGS (6)
  1. FENOFIBRATE [Concomitant]
     Dosage: 200 MG
  2. PRADAXA [Suspect]
     Dosage: 300 MG
     Route: 048
     Dates: start: 20110214, end: 20110310
  3. ASPIRIN [Concomitant]
     Dosage: 81 MG
  4. DILTIAZEM [Concomitant]
     Dosage: 240 MG
  5. SIMVASTATIN [Concomitant]
     Dosage: 20 MG
  6. MULTAQ [Concomitant]
     Dosage: 800 MG

REACTIONS (3)
  - PROCTALGIA [None]
  - INTERNATIONAL NORMALISED RATIO INCREASED [None]
  - RECTAL HAEMORRHAGE [None]
